FAERS Safety Report 11357735 (Version 1)
Quarter: 2015Q3

REPORT INFORMATION
  Report Type: Spontaneous
  Country: US (occurrence: US)
  Receive Date: 20150803
  Receipt Date: 20150803
  Transmission Date: 20151125
  Serious: No
  Sender: FDA-Public Use
  Company Number: US-ELI_LILLY_AND_COMPANY-US201203005788

PATIENT
  Age: 15 Year
  Sex: Male

DRUGS (6)
  1. INTUNIV [Concomitant]
     Active Substance: GUANFACINE HYDROCHLORIDE
  2. STRATTERA [Suspect]
     Active Substance: ATOMOXETINE HYDROCHLORIDE
     Indication: ATTENTION DEFICIT/HYPERACTIVITY DISORDER
     Dosage: 25 MG, QD
  3. DEPAKOTE [Concomitant]
     Active Substance: DIVALPROEX SODIUM
  4. REMERON [Concomitant]
     Active Substance: MIRTAZAPINE
  5. METHYLIN [Concomitant]
     Active Substance: METHYLPHENIDATE HYDROCHLORIDE
  6. DAYTRANA [Concomitant]
     Active Substance: METHYLPHENIDATE

REACTIONS (1)
  - Obsessive-compulsive disorder [Unknown]
